FAERS Safety Report 4952597-0 (Version None)
Quarter: 2006Q1

REPORT INFORMATION
  Report Type: 
  Country: None (occurrence: None)
  Receive Date: 20060317
  Receipt Date: 20060306
  Transmission Date: 20060701
  Serious: Yes (Other)
  Sender: FDA-Public Use
  Company Number: 200610074BCC

PATIENT
  Age: 74 Year
  Sex: Female
  Weight: 65.7716 kg

DRUGS (2)
  1. ALEVE (CAPLET) [Suspect]
     Indication: BACK PAIN
     Dosage: 220 MG, PRN, ORAL
     Route: 048
     Dates: start: 20010101
  2. MYADEC [Concomitant]

REACTIONS (3)
  - HEPATIC CIRRHOSIS [None]
  - LIVER DISORDER [None]
  - WEIGHT DECREASED [None]
